FAERS Safety Report 25400911 (Version 1)
Quarter: 2025Q2

REPORT INFORMATION
  Report Type: Spontaneous
  Country: US (occurrence: US)
  Receive Date: 20250605
  Receipt Date: 20250605
  Transmission Date: 20250716
  Serious: Yes (Other)
  Sender: STRIDES
  Company Number: US-MLMSERVICE-20250303-PI435041-00232-1

PATIENT
  Age: 68 Year
  Sex: Male

DRUGS (6)
  1. MYCOPHENOLATE MOFETIL [Suspect]
     Active Substance: MYCOPHENOLATE MOFETIL
     Indication: Prophylaxis
     Route: 048
  2. MYCOPHENOLATE MOFETIL [Suspect]
     Active Substance: MYCOPHENOLATE MOFETIL
     Indication: Corneal graft failure
  3. PREDNISOLONE ACETATE [Suspect]
     Active Substance: PREDNISOLONE ACETATE
     Indication: Corneal oedema
     Route: 061
  4. BRIMONIDINE [Concomitant]
     Active Substance: BRIMONIDINE TARTRATE
     Indication: Uveitic glaucoma
     Route: 061
  5. TIMOLOL [Concomitant]
     Active Substance: TIMOLOL
     Indication: Uveitic glaucoma
     Route: 061
  6. SODIUM CHLORIDE [Concomitant]
     Active Substance: SODIUM CHLORIDE
     Indication: Corneal oedema
     Route: 061

REACTIONS (3)
  - Infectious crystalline keratopathy [Recovered/Resolved]
  - Streptococcal infection [Not Recovered/Not Resolved]
  - Off label use [Unknown]
